FAERS Safety Report 9414318 (Version 1)
Quarter: 2013Q3

REPORT INFORMATION
  Report Type: Spontaneous
  Country: US (occurrence: US)
  Receive Date: 20130723
  Receipt Date: 20130723
  Transmission Date: 20140515
  Serious: Yes (Hospitalization)
  Sender: FDA-Public Use
  Company Number: US-B.I. PHARMACEUTICALS,INC./RIDGEFIELD-2013-BI-21176BP

PATIENT
  Age: 84 Year
  Sex: Female

DRUGS (9)
  1. SPIRIVA [Suspect]
     Indication: CHRONIC OBSTRUCTIVE PULMONARY DISEASE
     Dosage: 18 MCG
     Route: 055
     Dates: start: 2012, end: 201301
  2. SPIRIVA [Suspect]
     Dosage: 18 MCG
     Dates: start: 201305
  3. DIOVAN [Concomitant]
     Indication: HYPERTENSION
  4. AMLODIPINE [Concomitant]
     Indication: HYPERTENSION
  5. BROVANA [Concomitant]
     Indication: CHRONIC OBSTRUCTIVE PULMONARY DISEASE
  6. BUDESONIDE [Concomitant]
     Indication: DYSPNOEA
  7. NEXIUM [Concomitant]
     Indication: GASTROOESOPHAGEAL REFLUX DISEASE
  8. LEVOTHYROXINE [Concomitant]
     Indication: HYPOTHYROIDISM
  9. SINGULAIR [Concomitant]

REACTIONS (2)
  - Influenza [Recovered/Resolved]
  - Fluid retention [Not Recovered/Not Resolved]
